FAERS Safety Report 4516839-8 (Version None)
Quarter: 2004Q4

REPORT INFORMATION
  Report Type: 
  Country: None (occurrence: None)
  Receive Date: 20041202
  Receipt Date: 20041113
  Transmission Date: 20050328
  Serious: Yes (Life-Threatening, Other)
  Sender: FDA-Public Use
  Company Number: EE-GLAXOSMITHKLINE-B0357635A

PATIENT
  Age: 6 Month
  Sex: Female
  Weight: 6.7 kg

DRUGS (2)
  1. ZINACEF [Suspect]
     Dosage: 175MG THREE TIMES PER DAY
     Route: 042
     Dates: start: 20041108, end: 20041110
  2. ZYRTEC [Concomitant]
     Route: 048
     Dates: start: 20041108, end: 20041115

REACTIONS (6)
  - ADVERSE DRUG REACTION [None]
  - ASTHENIA [None]
  - CIRCULATORY COLLAPSE [None]
  - CYANOSIS [None]
  - ILL-DEFINED DISORDER [None]
  - PALLOR [None]
